FAERS Safety Report 21861823 (Version 1)
Quarter: 2023Q1

REPORT INFORMATION
  Report Type: Spontaneous
  Country: BR (occurrence: BR)
  Receive Date: 20230113
  Receipt Date: 20230113
  Transmission Date: 20230417
  Serious: Yes (Disabling, Other)
  Sender: FDA-Public Use
  Company Number: BR-TEVA BRAZIL-2023-BR-2844237

PATIENT
  Sex: Female
  Weight: 55 kg

DRUGS (1)
  1. NEOTIGASON [Suspect]
     Active Substance: ACITRETIN
     Indication: Xeroderma pigmentosum
     Dosage: 10MG ONCE A DAY OR 25MG DEPENDING ON AVAILABILITY OF MEDICINE, STARTED BETWEEN --2000 TO--2001
     Route: 048

REACTIONS (4)
  - Disability [Unknown]
  - Surgery [Unknown]
  - Off label use [Unknown]
  - Product use issue [Unknown]
